FAERS Safety Report 24583374 (Version 1)
Quarter: 2024Q4

REPORT INFORMATION
  Report Type: Report from Study
  Country: US (occurrence: US)
  Receive Date: 20241106
  Receipt Date: 20241106
  Transmission Date: 20250114
  Serious: Yes (Hospitalization)
  Sender: TAIHO ONCOLOGY INC
  Company Number: US-OTSUKA-2024_018756

PATIENT
  Age: 81 Year
  Sex: Female

DRUGS (2)
  1. INQOVI [Suspect]
     Active Substance: CEDAZURIDINE\DECITABINE
     Indication: Myelodysplastic syndrome
     Dosage: 1 DF (35 MG DECITABINE AND 100 MG CEDAZURIDINE) DAILY FOR 5 DAYS OF EACH 28 DAY CYCLE
     Route: 048
     Dates: start: 20240606
  2. INQOVI [Suspect]
     Active Substance: CEDAZURIDINE\DECITABINE
     Dosage: 1 DF (35 MG DECITABINE AND 100 MG CEDAZURIDINE) DAILY FOR 5 DAYS OF EACH 28 DAY CYCLE; CURRENT CYCLE
     Route: 048
     Dates: start: 20240624

REACTIONS (5)
  - Asthenia [Unknown]
  - Neutropenia [Unknown]
  - Transfusion [Unknown]
  - Platelet count decreased [Unknown]
  - Therapy interrupted [Unknown]

NARRATIVE: CASE EVENT DATE: 20240101
